FAERS Safety Report 22065706 (Version 1)
Quarter: 2023Q1

REPORT INFORMATION
  Report Type: Spontaneous
  Country: US (occurrence: None)
  Receive Date: 20230303
  Receipt Date: 20230303
  Transmission Date: 20230418
  Serious: Yes (Hospitalization)
  Sender: FDA-Public Use
  Company Number: None

PATIENT
  Age: 62 Year
  Sex: Female

DRUGS (29)
  1. OPSUMIT [Suspect]
     Active Substance: MACITENTAN
     Indication: Pulmonary arterial hypertension
     Dosage: FREQUENCY : DAILY;?
     Route: 048
     Dates: start: 20181108
  2. TADALAFIL [Concomitant]
  3. OMEPRAZOLE [Concomitant]
  4. BUMEX [Concomitant]
  5. FERROUS SULFATE [Concomitant]
  6. SENNOSIDES-DOCUSATE [Concomitant]
  7. ATORVASTATIN [Concomitant]
  8. NARCAN [Concomitant]
  9. WARFARIN [Concomitant]
  10. TRAMADOL [Concomitant]
  11. LEVOTHYROXINE [Concomitant]
  12. LIOTHYRONINE [Concomitant]
  13. ZOFRAN [Concomitant]
  14. DIGOXIN [Concomitant]
  15. ALPRAZOLAM [Concomitant]
  16. NYSTATIN [Concomitant]
  17. TOPICAL POWDER [Concomitant]
  18. ALBUTEROL HFA [Concomitant]
  19. BISOPROLOL [Concomitant]
  20. POTASSIUM CHLORIDE [Concomitant]
  21. WIXELA INHUB [Concomitant]
  22. FLONASE [Concomitant]
  23. MONTELUKAST [Concomitant]
  24. ACYCLOVIR [Concomitant]
  25. CETIRIZINE [Concomitant]
  26. DICLOFENAC TOPO GEL [Concomitant]
  27. ASCORBIC ACIDS [Concomitant]
  28. SUPPLEMENTAL OXYGEN [Concomitant]
  29. TYLENOL [Concomitant]

REACTIONS (4)
  - Generalised oedema [None]
  - Product use issue [None]
  - Weight increased [None]
  - SARS-CoV-2 test positive [None]

NARRATIVE: CASE EVENT DATE: 20230219
